FAERS Safety Report 7480997-6 (Version None)
Quarter: 2011Q2

REPORT INFORMATION
  Report Type: 
  Country: None (occurrence: None)
  Receive Date: 20110512
  Receipt Date: 20110512
  Transmission Date: 20111010
  Serious: Yes (Death)
  Sender: FDA-Public Use
  Company Number: None

PATIENT
  Age: 32 Year
  Sex: Female
  Weight: 65.7716 kg

DRUGS (1)
  1. MINOXIDIL [Suspect]
     Indication: BLOOD PRESSURE INCREASED
     Dosage: 10MG DAILY PO
     Route: 048
     Dates: start: 20090101, end: 20100101

REACTIONS (1)
  - CARDIO-RESPIRATORY ARREST [None]
